FAERS Safety Report 8908467 (Version 1)
Quarter: 2012Q4

REPORT INFORMATION
  Report Type: 
  Country: US (occurrence: US)
  Receive Date: 20121114
  Receipt Date: 20121114
  Transmission Date: 20130627
  Serious: Yes (Other)
  Sender: FDA-Public Use
  Company Number: US-COVIDIEN/TYCO HEALTHCARE/MALLINCKRODT-T201203888

PATIENT
  Age: 33 Year
  Sex: Female

DRUGS (8)
  1. TRAMADOL [Suspect]
     Indication: NEUROPATHY PERIPHERAL
     Dosage: up to 1200 mg, qd
  2. TRAMADOL [Suspect]
     Dosage: 300-400 mg qd
  3. SERTRALINE [Suspect]
     Indication: DEPRESSION
     Dosage: 50 mg, qd
  4. VENLAFAXINE [Suspect]
     Indication: DEPRESSIVE SYMPTOM
     Dosage: titrated to 300 mg, qd
  5. LAMOTRIGINE [Suspect]
     Indication: CONVULSION
     Dosage: 300 mg, qd
  6. LAMOTRIGINE [Suspect]
     Dosage: 200 mg, qd
  7. LAMOTRIGINE [Suspect]
     Dosage: tapered to 200 mg, qd
  8. PHENYTOIN [Suspect]
     Indication: CONVULSION
     Dosage: 200 mg, qd

REACTIONS (5)
  - Drug interaction [Recovered/Resolved]
  - Convulsion [Recovered/Resolved]
  - Depression [Recovering/Resolving]
  - Intentional drug misuse [Recovered/Resolved]
  - Dependence [Recovered/Resolved]
